FAERS Safety Report 8421316-8 (Version None)
Quarter: 2012Q2

REPORT INFORMATION
  Report Type: 
  Country: None (occurrence: None)
  Receive Date: 20120608
  Receipt Date: 20120530
  Transmission Date: 20120825
  Serious: Yes (Other)
  Sender: FDA-Public Use
  Company Number: PHHY2011FR113297

PATIENT
  Sex: Male
  Weight: 84 kg

DRUGS (8)
  1. GLEEVEC [Suspect]
     Indication: MYELOID LEUKAEMIA
     Dosage: 400 MG, DAILY
     Dates: start: 20010101
  2. BETA BLOCKING AGENTS [Concomitant]
     Dosage: UNK
  3. GLEEVEC [Suspect]
     Dosage: 400 MG, DAILY
  4. BISOPROLOL FUMARATE [Concomitant]
     Dosage: 0.5 TABLET DAILY,
  5. LEUPROLIDE ACETATE [Concomitant]
     Dosage: UNK
  6. SINTROM [Concomitant]
     Indication: CEREBROVASCULAR ACCIDENT
     Dosage: 1  TABLET DAILY
  7. DIGOXIN [Concomitant]
     Indication: ATRIAL FIBRILLATION
     Dosage: 0.5 TABLET DAILY
  8. MODURETIC 5-50 [Concomitant]
     Dosage: 0.5 TABLET DAILY

REACTIONS (12)
  - VISUAL ACUITY REDUCED [None]
  - EYE DISORDER [None]
  - DIARRHOEA [None]
  - PETECHIAE [None]
  - AGE-RELATED MACULAR DEGENERATION [None]
  - PURPURA SENILE [None]
  - ORBITAL OEDEMA [None]
  - PLATELET COUNT DECREASED [None]
  - VIRAL INFECTION [None]
  - CATARACT [None]
  - OEDEMA PERIPHERAL [None]
  - RETINAL HAEMORRHAGE [None]
